FAERS Safety Report 9733601 (Version 3)
Quarter: 2013Q4

REPORT INFORMATION
  Report Type: Report from Study
  Country: DE (occurrence: DE)
  Receive Date: 20131205
  Receipt Date: 20131218
  Transmission Date: 20140711
  Serious: Yes (Life-Threatening, Hospitalization)
  Sender: FDA-Public Use
  Company Number: DE-GLAXOSMITHKLINE-B0950414A

PATIENT
  Age: 78 Year
  Sex: Female

DRUGS (9)
  1. PAZOPANIB [Suspect]
     Indication: SARCOMA
     Dosage: 800MG PER DAY
     Route: 048
     Dates: start: 20131118
  2. HCT [Suspect]
     Indication: PRODUCT USED FOR UNKNOWN INDICATION
     Dosage: 25MG PER DAY
     Route: 048
     Dates: end: 20131203
  3. L THYROXIN [Concomitant]
     Dosage: 75MG PER DAY
     Route: 048
  4. LOSARTAN [Concomitant]
     Dosage: 100MG PER DAY
     Route: 048
  5. BISOPROLOL [Concomitant]
     Dosage: 1.25MG PER DAY
     Route: 048
  6. ATORVASTATIN [Concomitant]
     Dosage: 20MG PER DAY
     Route: 048
  7. METAMIZOLE [Concomitant]
     Dosage: 500MG THREE TIMES PER DAY
     Route: 048
  8. AMLODIPINE [Concomitant]
     Dosage: 5MG PER DAY
     Route: 048
     Dates: start: 20131124
  9. CLONIDINE [Concomitant]
     Dosage: .15MG PER DAY
     Route: 048
     Dates: start: 20131128

REACTIONS (1)
  - Hyponatraemia [Recovered/Resolved]
